FAERS Safety Report 5612533-0 (Version None)
Quarter: 2008Q1

REPORT INFORMATION
  Report Type: 
  Country: None (occurrence: None)
  Receive Date: 20080204
  Receipt Date: 20080122
  Transmission Date: 20080703
  Serious: Yes (Death)
  Sender: FDA-Public Use
  Company Number: US-KINGPHARMUSA00001-K200800113

PATIENT

DRUGS (4)
  1. AVINZA [Suspect]
  2. OPIOIDS [Suspect]
  3. OPIOID ANTAGONIST [Suspect]
  4. AMITRIPTYLINE HCL [Suspect]

REACTIONS (1)
  - CARDIO-RESPIRATORY ARREST [None]
